FAERS Safety Report 4516337-1 (Version None)
Quarter: 2004Q4

REPORT INFORMATION
  Report Type: 
  Country: None (occurrence: None)
  Receive Date: 20041202
  Receipt Date: 20040708
  Transmission Date: 20050328
  Serious: No
  Sender: FDA-Public Use
  Company Number: US-GLAXOSMITHKLINE-A0517427A

PATIENT
  Age: 29 Year
  Sex: Male
  Weight: 74.5 kg

DRUGS (2)
  1. AUGMENTIN '125' [Suspect]
     Dosage: 2TAB TWICE PER DAY
     Route: 048
     Dates: start: 20040702, end: 20040712
  2. ADVIL [Concomitant]
     Indication: PAIN
     Route: 048
     Dates: start: 20040623

REACTIONS (1)
  - MYALGIA [None]
